FAERS Safety Report 18383626 (Version 2)
Quarter: 2020Q4

REPORT INFORMATION
  Report Type: Report from Study
  Country: US (occurrence: US)
  Receive Date: 20201014
  Receipt Date: 20201210
  Transmission Date: 20210114
  Serious: Yes (Other)
  Sender: FDA-Public Use
  Company Number: US-ASTRAZENECA-2020SE18304

PATIENT
  Age: 27754 Day
  Sex: Male
  Weight: 140 kg

DRUGS (13)
  1. CALQUENCE [Suspect]
     Active Substance: ACALABRUTINIB
     Indication: B-CELL SMALL LYMPHOCYTIC LYMPHOMA
     Route: 048
     Dates: start: 20191028
  2. CALQUENCE [Suspect]
     Active Substance: ACALABRUTINIB
     Indication: WALDENSTROM^S MACROGLOBULINAEMIA
     Route: 048
     Dates: start: 20191015
  3. CALQUENCE [Suspect]
     Active Substance: ACALABRUTINIB
     Indication: B-CELL SMALL LYMPHOCYTIC LYMPHOMA
     Route: 048
     Dates: start: 20191015
  4. CALQUENCE [Suspect]
     Active Substance: ACALABRUTINIB
     Indication: B-CELL SMALL LYMPHOCYTIC LYMPHOMA
     Route: 048
     Dates: start: 20191020
  5. CALQUENCE [Suspect]
     Active Substance: ACALABRUTINIB
     Indication: CHRONIC LYMPHOCYTIC LEUKAEMIA
     Route: 048
     Dates: start: 20191028
  6. CALQUENCE [Suspect]
     Active Substance: ACALABRUTINIB
     Indication: MARGINAL ZONE LYMPHOMA
     Route: 048
     Dates: start: 20191020
  7. CALQUENCE [Suspect]
     Active Substance: ACALABRUTINIB
     Indication: WALDENSTROM^S MACROGLOBULINAEMIA
     Route: 048
     Dates: start: 20191028
  8. CALQUENCE [Suspect]
     Active Substance: ACALABRUTINIB
     Indication: CHRONIC LYMPHOCYTIC LEUKAEMIA
     Route: 048
     Dates: start: 20191015
  9. CALQUENCE [Suspect]
     Active Substance: ACALABRUTINIB
     Indication: MARGINAL ZONE LYMPHOMA
     Route: 048
     Dates: start: 20191015
  10. CALQUENCE [Suspect]
     Active Substance: ACALABRUTINIB
     Indication: CHRONIC LYMPHOCYTIC LEUKAEMIA
     Route: 048
     Dates: start: 20191020
  11. CALQUENCE [Suspect]
     Active Substance: ACALABRUTINIB
     Indication: WALDENSTROM^S MACROGLOBULINAEMIA
     Route: 048
     Dates: start: 20191020
  12. CALQUENCE [Suspect]
     Active Substance: ACALABRUTINIB
     Indication: MARGINAL ZONE LYMPHOMA
     Route: 048
     Dates: start: 20191028
  13. SOTALOL. [Concomitant]
     Active Substance: SOTALOL
     Indication: ATRIAL FIBRILLATION
     Dates: start: 20190816

REACTIONS (10)
  - White blood cell count decreased [Not Recovered/Not Resolved]
  - Product dose omission issue [Unknown]
  - Immunoglobulins decreased [Unknown]
  - Bronchitis [Recovered/Resolved]
  - Epistaxis [Recovered/Resolved]
  - Deafness [Not Recovered/Not Resolved]
  - Nasopharyngitis [Unknown]
  - Seasonal allergy [Unknown]
  - Hyperhidrosis [Unknown]
  - Exposure to extreme temperature [Unknown]

NARRATIVE: CASE EVENT DATE: 20200202
